FAERS Safety Report 8006571-0 (Version None)
Quarter: 2011Q4

REPORT INFORMATION
  Report Type: 
  Country: None (occurrence: None)
  Receive Date: 20111227
  Receipt Date: 20111217
  Transmission Date: 20120403
  Serious: Yes (Other)
  Sender: FDA-Public Use
  Company Number: US-PAR PHARMACEUTICAL, INC-2011SCPR003559

PATIENT

DRUGS (2)
  1. OLANZAPINE [Suspect]
     Indication: DRUG WITHDRAWAL SYNDROME
     Dosage: UNK UNK, UNKNOWN
     Route: 065
     Dates: start: 20061011
  2. ARSENIC TRIOXIDE [Suspect]
     Indication: PRODUCT USED FOR UNKNOWN INDICATION
     Dosage: 0.15 MG/KG, UNKNOWN
     Route: 042

REACTIONS (1)
  - ELECTROCARDIOGRAM QT PROLONGED [None]
